FAERS Safety Report 10268889 (Version 7)
Quarter: 2014Q4

REPORT INFORMATION
  Report Type: Report from Study
  Country: FR (occurrence: FR)
  Receive Date: 20140630
  Receipt Date: 20141031
  Transmission Date: 20150528
  Serious: Yes (Life-Threatening, Hospitalization, Other)
  Sender: FDA-Public Use
  Company Number: FR-JNJFOC-20140616476

PATIENT
  Age: 79 Year
  Sex: Male
  Weight: 77 kg

DRUGS (6)
  1. IBRUTINIB [Suspect]
     Active Substance: IBRUTINIB
     Indication: CHRONIC LYMPHOCYTIC LEUKAEMIA
     Route: 048
     Dates: start: 20140531, end: 20140920
  2. LEUPRORELIN [Concomitant]
     Active Substance: LEUPROLIDE ACETATE
     Indication: NEOPLASM PROSTATE
     Route: 065
  3. METFORMIN AND SITAGLIPTIN [Concomitant]
     Active Substance: METFORMIN\SITAGLIPTIN
     Indication: TYPE 2 DIABETES MELLITUS
     Route: 065
  4. LYSINE ACETYLSALICYLATE [Concomitant]
     Active Substance: ASPIRIN LYSINE
     Indication: HYPERTENSION
     Route: 065
  5. BISOPROLOL [Concomitant]
     Active Substance: BISOPROLOL
     Indication: HYPERTENSION
     Route: 065
  6. VALACICLOVIR [Concomitant]
     Active Substance: VALACYCLOVIR HYDROCHLORIDE
     Indication: PROPHYLAXIS
     Route: 065

REACTIONS (5)
  - Pulmonary sepsis [Recovered/Resolved with Sequelae]
  - Lymphocyte count increased [Unknown]
  - White blood cell count increased [Recovered/Resolved]
  - Neutrophil count decreased [Recovered/Resolved]
  - General physical health deterioration [Unknown]

NARRATIVE: CASE EVENT DATE: 20140620
